FAERS Safety Report 12663411 (Version 1)
Quarter: 2016Q3

REPORT INFORMATION
  Report Type: Report from Study
  Country: PH (occurrence: PH)
  Receive Date: 20160818
  Receipt Date: 20160818
  Transmission Date: 20161109
  Serious: Yes (Hospitalization, Other)
  Sender: FDA-Public Use
  Company Number: PH-009507513-1608PHL004850

PATIENT
  Age: 64 Year
  Sex: Male

DRUGS (1)
  1. HYZAAR [Suspect]
     Active Substance: HYDROCHLOROTHIAZIDE\LOSARTAN POTASSIUM
     Indication: HYPERTENSION
     Dosage: 50/12.5 MG, 1 TABLET, ONCE A DAY
     Route: 048
     Dates: start: 2015, end: 2016

REACTIONS (1)
  - Intracranial aneurysm [Recovering/Resolving]

NARRATIVE: CASE EVENT DATE: 20160614
